FAERS Safety Report 4502895-X (Version None)
Quarter: 2004Q4

REPORT INFORMATION
  Report Type: 
  Country: None (occurrence: None)
  Receive Date: 20041112
  Receipt Date: 20041104
  Transmission Date: 20050328
  Serious: Yes (Life-Threatening)
  Sender: FDA-Public Use
  Company Number: 04H-163-0279865-00

PATIENT
  Age: 44 Year
  Sex: Female

DRUGS (12)
  1. ETOMIDATE [Suspect]
     Indication: ANAESTHESIA
     Dosage: 16 MG, ONCE, INTRAVENOUS
     Route: 042
  2. SUCCINYLCHLOLINE CHLORIDE INJ [Suspect]
     Indication: ANAESTHESIA
     Dosage: 80 MG, ONCE, INTRAVENOUS SEE IMAGE
     Route: 042
  3. FLUMAZENIL [Suspect]
     Indication: ANAESTHETIC PREMEDICATION
     Dosage: 0.2 MG, ONCE, INTRAVENOUS
     Route: 042
  4. PROPOFOL [Suspect]
     Indication: ANAESTHESIA
     Dosage: 110 MG, ONCE, INTRAVENOUS
     Route: 042
  5. CLONAZEPAM [Concomitant]
  6. MIRTAZAPINE [Concomitant]
  7. CITALOPRAM [Concomitant]
  8. ZIPRASIDONE [Concomitant]
  9. METOCLOPRAMIDE [Concomitant]
  10. NIZATIDINE [Concomitant]
  11. GLUCOPYPRONIUM BROMIDE [Concomitant]
  12. ATROPINE [Concomitant]

REACTIONS (2)
  - BRADYCARDIA [None]
  - CARDIAC ARREST [None]
